FAERS Safety Report 5421307-5 (Version None)
Quarter: 2007Q3

REPORT INFORMATION
  Report Type: 
  Country: None (occurrence: None)
  Receive Date: 20070817
  Receipt Date: 20070802
  Transmission Date: 20080115
  Serious: Yes (Life-Threatening, Other)
  Sender: FDA-Public Use
  Company Number: 2007US001924

PATIENT
  Age: 55 Year
  Sex: Male

DRUGS (17)
  1. AMBISOME [Suspect]
     Indication: SYSTEMIC CANDIDA
     Dosage: 200 MG, UID/QD, IV DRIP
     Route: 041
     Dates: start: 20070606, end: 20070629
  2. PROGRAF [Suspect]
     Indication: DRUG USE FOR UNKNOWN INDICATION
     Dosage: 0.6 MG, UID/QD, IV DRIP
     Route: 041
  3. VANCOMYCIN HYDROCHLORIDE [Suspect]
     Indication: DRUG USE FOR UNKNOWN INDICATION
     Dosage: 1 G, UID/QD, IV DRIP
     Route: 041
     Dates: start: 20070615
  4. NEUPOGEN [Concomitant]
  5. PREDNISOLONE [Concomitant]
  6. FRAGMIN [Concomitant]
  7. OMEPRAZOLE [Concomitant]
  8. FUNGUARD (MICAFUNGIN SODIUM) [Concomitant]
  9. VFEND [Concomitant]
  10. ACYCLOVIR [Concomitant]
  11. DENOSINE (GANCICLOVIR) [Concomitant]
  12. MAXIPIME [Concomitant]
  13. VICCILLIN-S [Concomitant]
  14. BACTRIM [Concomitant]
  15. CIPROFLAXACIN [Concomitant]
  16. MEROPEN (MEROPENEM) [Concomitant]
  17. ANTITHROMBIN III (ANTITHROMBIN III) [Concomitant]

REACTIONS (18)
  - ALANINE AMINOTRANSFERASE INCREASED [None]
  - ASPARTATE AMINOTRANSFERASE INCREASED [None]
  - BLOOD BILIRUBIN INCREASED [None]
  - BLOOD CREATININE DECREASED [None]
  - BLOOD CREATININE INCREASED [None]
  - BLOOD UREA INCREASED [None]
  - C-REACTIVE PROTEIN INCREASED [None]
  - CONDITION AGGRAVATED [None]
  - HAEMATOCRIT DECREASED [None]
  - HAEMODIALYSIS [None]
  - HAEMOGLOBIN DECREASED [None]
  - LIVER DISORDER [None]
  - PLATELET COUNT DECREASED [None]
  - RED BLOOD CELL COUNT DECREASED [None]
  - RENAL DISORDER [None]
  - SEPSIS [None]
  - SHOCK [None]
  - WHITE BLOOD CELL COUNT DECREASED [None]
